FAERS Safety Report 6139619-9 (Version None)
Quarter: 2009Q1

REPORT INFORMATION
  Report Type: 
  Country: None (occurrence: None)
  Receive Date: 20090324
  Receipt Date: 20090319
  Transmission Date: 20090719
  Serious: Yes (Hospitalization)
  Sender: FDA-Public Use
  Company Number: OMZ20090006

PATIENT
  Age: 78 Year
  Sex: Female

DRUGS (15)
  1. OMEPRAZOLE [Suspect]
     Indication: DIVERTICULUM
     Dosage: ORAL
     Route: 048
     Dates: start: 20010101, end: 20080101
  2. OMEPRAZOLE [Suspect]
     Indication: DUODENITIS
     Dosage: ORAL
     Route: 048
     Dates: start: 20010101, end: 20080101
  3. OMEPRAZOLE [Suspect]
     Indication: HIATUS HERNIA
     Dosage: ORAL
     Route: 048
     Dates: start: 20010101, end: 20080101
  4. SPIRONOLACTONE [Concomitant]
  5. BUMETANIDE [Concomitant]
  6. FUROSEMIDE [Concomitant]
  7. GABAPENTIN [Concomitant]
  8. ACETAMINOPHEN W/ CODEINE [Concomitant]
  9. HYOSCINE HBR HYT [Concomitant]
  10. NITROGLYCERIN [Concomitant]
  11. LOSARTAN POTASSIUM [Concomitant]
  12. ASPIRIN [Concomitant]
  13. ATORVASTATIN [Concomitant]
  14. IPRATROPIUM BROMIDE [Concomitant]
  15. SALMETEROL [Concomitant]

REACTIONS (12)
  - AGITATION [None]
  - CHRONIC OBSTRUCTIVE PULMONARY DISEASE [None]
  - CONDITION AGGRAVATED [None]
  - DIARRHOEA [None]
  - HALLUCINATION [None]
  - HYPOCALCAEMIA [None]
  - HYPOKALAEMIA [None]
  - HYPOMAGNESAEMIA [None]
  - MUSCLE DISORDER [None]
  - NO THERAPEUTIC RESPONSE [None]
  - OEDEMA PERIPHERAL [None]
  - VOMITING [None]
